FAERS Safety Report 8496914-6 (Version None)
Quarter: 2012Q3

REPORT INFORMATION
  Report Type: 
  Country: None (occurrence: None)
  Receive Date: 20120709
  Receipt Date: 20120628
  Transmission Date: 20120928
  Serious: Yes (Hospitalization, Other)
  Sender: FDA-Public Use
  Company Number: ES-ELI_LILLY_AND_COMPANY-ES201206004123

PATIENT
  Sex: Female
  Weight: 77 kg

DRUGS (14)
  1. CALCIUM PIDOLATE [Concomitant]
  2. BISOPROLOL FUMARATE [Concomitant]
     Indication: CARDIAC DISORDER
     Dosage: 2.5 MG, QD
     Route: 048
  3. ALLOPURINOL [Concomitant]
     Indication: BLOOD URIC ACID
     Dosage: 100 MG, QD
     Route: 048
  4. ALDACTONE [Concomitant]
     Indication: HYPERTENSION
     Dosage: 25 MG, QD
     Route: 048
  5. OMEPRAZOLE [Concomitant]
     Indication: GASTRIC DISORDER
     Dosage: 20 MG, QD
     Route: 048
  6. ACETAMINOPHEN [Concomitant]
     Indication: PAIN
     Dosage: 1 G, QD
     Route: 048
  7. RISEDRONIC  ACID [Concomitant]
  8. MINITRAN                           /00003201/ [Concomitant]
     Indication: CARDIAC DISORDER
     Dosage: 5 MG, QD
  9. FORTEO [Suspect]
     Indication: OSTEOPOROSIS
     Dosage: 20 UG, QD
     Route: 058
     Dates: start: 20120531
  10. ATORVASTATIN CALCIUM [Concomitant]
     Indication: BLOOD CHOLESTEROL INCREASED
     Dosage: 40 MG, QD
     Route: 048
  11. SINTROM [Concomitant]
     Indication: CARDIAC DISORDER
     Dosage: 4 MG, PRN
     Route: 048
  12. RESINCALCIO [Concomitant]
     Indication: OSTEOPOROSIS
     Dosage: 15 G, QD
     Route: 048
  13. METAMIZOL [Concomitant]
  14. HIDROFEROL [Concomitant]

REACTIONS (6)
  - INTERNATIONAL NORMALISED RATIO INCREASED [None]
  - CONTUSION [None]
  - THROMBOSIS [None]
  - ANAEMIA [None]
  - HYPERKALAEMIA [None]
  - FALL [None]
